FAERS Safety Report 7783457-8 (Version None)
Quarter: 2011Q3

REPORT INFORMATION
  Report Type: 
  Country: None (occurrence: None)
  Receive Date: 20110928
  Receipt Date: 20110928
  Transmission Date: 20111222
  Serious: Yes (Hospitalization)
  Sender: FDA-Public Use
  Company Number: None

PATIENT
  Age: 31 Year
  Sex: Female
  Weight: 77.11 kg

DRUGS (2)
  1. YAZ [Suspect]
     Indication: MENSTRUATION IRREGULAR
     Dosage: 1 EACH PER DAY
     Route: 048
     Dates: start: 20080101, end: 20110927
  2. YAZ [Suspect]
     Indication: CONTRACEPTION
     Dosage: 1 EACH PER DAY
     Route: 048
     Dates: start: 20080101, end: 20110927

REACTIONS (5)
  - NEPHROLITHIASIS [None]
  - CHOLELITHIASIS [None]
  - THROMBOSIS [None]
  - DISCOMFORT [None]
  - ABDOMINAL DISTENSION [None]
